FAERS Safety Report 9385839 (Version 3)
Quarter: 2014Q1

REPORT INFORMATION
  Report Type: Spontaneous
  Country: US (occurrence: US)
  Receive Date: 20130705
  Receipt Date: 20140306
  Transmission Date: 20141002
  Serious: Yes (Hospitalization)
  Sender: FDA-Public Use
  Company Number: US-B.I. PHARMACEUTICALS,INC./RIDGEFIELD-2013-BI-19164BP

PATIENT
  Age: 57 Year
  Sex: Male
  Weight: 63.5 kg

DRUGS (15)
  1. PRADAXA [Suspect]
     Indication: ATRIAL FIBRILLATION
     Dosage: 300 MG
     Route: 065
     Dates: start: 20101116
  2. MS CONTIN [Concomitant]
     Route: 065
  3. OXYCODONE [Concomitant]
     Route: 065
  4. LYRICA [Concomitant]
     Route: 065
  5. FENTANYL [Concomitant]
     Route: 061
  6. LASIX [Concomitant]
     Dosage: 40 MG
     Route: 065
  7. MIRALAX [Concomitant]
     Dosage: 17 G
     Route: 065
  8. MUCINEX [Concomitant]
     Dosage: 600 MG
     Route: 065
  9. MULTIVITAMIN [Concomitant]
     Route: 065
  10. PRILOSEC [Concomitant]
     Route: 065
  11. REGLAN [Concomitant]
     Route: 065
  12. SPIRONOLACTONE [Concomitant]
     Route: 065
  13. XOPENEX [Concomitant]
     Route: 065
  14. COLACE [Concomitant]
     Dosage: 10 MG
     Route: 065
  15. FERROUS SULFATE [Concomitant]
     Dosage: 325 MG
     Route: 065

REACTIONS (2)
  - Gastrointestinal haemorrhage [Unknown]
  - Haemorrhagic anaemia [Unknown]
